FAERS Safety Report 7548179-7 (Version None)
Quarter: 2011Q2

REPORT INFORMATION
  Report Type: 
  Country: None (occurrence: None)
  Receive Date: 20110615
  Receipt Date: 20110603
  Transmission Date: 20111010
  Serious: Yes (Hospitalization)
  Sender: FDA-Public Use
  Company Number: US-JNJFOC-20110602225

PATIENT
  Sex: Male
  Weight: 108.86 kg

DRUGS (3)
  1. SIMPONI [Suspect]
     Indication: RHEUMATOID ARTHRITIS
     Route: 058
  2. METHOTREXATE [Concomitant]
     Indication: RHEUMATOID ARTHRITIS
     Route: 048
  3. SIMPONI [Suspect]
     Route: 058
     Dates: start: 20090101, end: 20100101

REACTIONS (4)
  - INFLUENZA LIKE ILLNESS [None]
  - DEVICE FAILURE [None]
  - ARTHRITIS [None]
  - DRUG DOSE OMISSION [None]
